FAERS Safety Report 8761804 (Version 1)
Quarter: 2012Q4

REPORT INFORMATION
  Report Type: Spontaneous
  Country: US (occurrence: None)
  Receive Date: 20120830
  Receipt Date: 20120830
  Transmission Date: 20130627
  Serious: Yes (Other)
  Sender: FDA-Public Use
  Company Number: None

PATIENT
  Age: 47 Year
  Weight: 54 kg

DRUGS (1)
  1. NEUTROGENA AGELESS ESSENTIALS CONTINUOUS HYDRATION DAILY MOISTURIZER SPF25 [Suspect]
     Dosage: 1x daily, Topical
     Route: 061

REACTIONS (4)
  - Rash generalised [None]
  - Swelling face [None]
  - Local swelling [None]
  - Asthma [None]
